FAERS Safety Report 7954748-2 (Version None)
Quarter: 2011Q4

REPORT INFORMATION
  Report Type: 
  Country: None (occurrence: None)
  Receive Date: 20111202
  Receipt Date: 20111126
  Transmission Date: 20120403
  Serious: Yes (Hospitalization)
  Sender: FDA-Public Use
  Company Number: IT-PURDUE-GBR-2011-0009077

PATIENT
  Sex: Male

DRUGS (13)
  1. OXYCONTIN [Suspect]
     Indication: ACCIDENTAL EXPOSURE
     Dosage: 60 MG, SINGLE
     Route: 048
     Dates: start: 20111106, end: 20111106
  2. POLASE [Concomitant]
     Dosage: 2 SACHET, DAILY
  3. PRAMIPEXOLE DIHYDROCHLORIDE [Concomitant]
     Dosage: 2 DF, UNK
     Route: 048
  4. PARACETAMOL W/TRAMADOL HYDROCHLORIDE [Concomitant]
     Dosage: 1 DF, UNK
     Route: 048
  5. MADOPAR [Concomitant]
     Indication: PARKINSON'S DISEASE
     Dosage: 2 DF, UNK
     Route: 048
  6. LASIX [Concomitant]
     Dosage: 4 DF, UNK
     Route: 048
  7. VALSARTAN [Concomitant]
     Indication: HYPERTENSION
     Dosage: 2 DF, UNK
     Route: 048
  8. UNOPROST                           /00685102/ [Concomitant]
     Dosage: 1 DF, UNK
     Route: 048
  9. TOLTERODINE TARTRATE [Concomitant]
     Dosage: 1 DF, UNK
     Route: 048
  10. OMEPRAZOLE [Concomitant]
     Dosage: 2 DF, UNK
     Route: 048
  11. LYRICA [Suspect]
     Indication: ACCIDENTAL EXPOSURE
     Dosage: 1 DF, SINGLE
     Route: 048
     Dates: start: 20111106, end: 20111106
  12. REQUIP [Suspect]
     Indication: ACCIDENTAL EXPOSURE
     Dosage: 4 DF, SINGLE
     Route: 048
     Dates: start: 20111106, end: 20111106
  13. AMIODARONE HCL [Concomitant]
     Dosage: 200 MG, DAILY
     Route: 048

REACTIONS (5)
  - HYPOTENSION [None]
  - SOPOR [None]
  - CONFUSIONAL STATE [None]
  - URINARY RETENTION [None]
  - ACCIDENTAL EXPOSURE [None]
